FAERS Safety Report 13050786 (Version 1)
Quarter: 2016Q4

REPORT INFORMATION
  Report Type: Spontaneous
  Country: US (occurrence: US)
  Receive Date: 20161221
  Receipt Date: 20161221
  Transmission Date: 20170207
  Serious: No
  Sender: FDA-Public Use
  Company Number: US-NOVOPROD-511669

PATIENT
  Age: 61 Year
  Sex: Female

DRUGS (1)
  1. LEVEMIR [Suspect]
     Active Substance: INSULIN DETEMIR
     Indication: TYPE 2 DIABETES MELLITUS
     Route: 058
     Dates: start: 201609

REACTIONS (5)
  - Malaise [Unknown]
  - Abdominal discomfort [Not Recovered/Not Resolved]
  - Bowel movement irregularity [Unknown]
  - Pyrexia [Unknown]
  - Nausea [Not Recovered/Not Resolved]
